FAERS Safety Report 6370176-8 (Version None)
Quarter: 2009Q3

REPORT INFORMATION
  Report Type: 
  Country: None (occurrence: None)
  Receive Date: 20090921
  Receipt Date: 20090921
  Transmission Date: 20100115
  Serious: Yes (Life-Threatening)
  Sender: FDA-Public Use
  Company Number: None

PATIENT
  Age: 71 Year
  Sex: Male
  Weight: 68.0396 kg

DRUGS (2)
  1. FLORINEF ACETATE [Suspect]
     Indication: PRIMARY ADRENAL INSUFFICIENCY
     Dosage: .1MG DAILY ORAL
     Route: 048
     Dates: start: 19750101, end: 20090101
  2. FLORINEF ACETATE [Suspect]
     Indication: PRIMARY ADRENAL INSUFFICIENCY
     Dosage: .1MG DAILY ORAL
     Route: 048
     Dates: start: 20090101

REACTIONS (3)
  - BLOOD PRESSURE ABNORMAL [None]
  - PRODUCT MEASURED POTENCY ISSUE [None]
  - PRODUCT SUBSTITUTION ISSUE [None]
